FAERS Safety Report 9139496 (Version 1)
Quarter: 2013Q1

REPORT INFORMATION
  Report Type: Spontaneous
  Country: US (occurrence: US)
  Receive Date: 20130305
  Receipt Date: 20130305
  Transmission Date: 20140127
  Serious: No
  Sender: FDA-Public Use
  Company Number: US-ABBOTT-12P-163-0995049-00

PATIENT
  Sex: Female

DRUGS (2)
  1. BIAXIN XL [Suspect]
     Indication: HELICOBACTER INFECTION
     Dates: start: 2012
  2. DITROPAN [Concomitant]
     Indication: PRODUCT USED FOR UNKNOWN INDICATION

REACTIONS (1)
  - Enuresis [Unknown]
